FAERS Safety Report 10458134 (Version 3)
Quarter: 2014Q3

REPORT INFORMATION
  Report Type: Report from Study
  Country: AU (occurrence: AU)
  Receive Date: 20140917
  Receipt Date: 20140918
  Transmission Date: 20150326
  Serious: Yes (Death, Hospitalization)
  Sender: FDA-Public Use
  Company Number: AU-ROCHE-1456377

PATIENT
  Age: 63 Year
  Sex: Male
  Weight: 65.5 kg

DRUGS (3)
  1. CAPECITABINE [Suspect]
     Active Substance: CAPECITABINE
     Indication: COLORECTAL CANCER METASTATIC
     Dosage: LAST DOSE OF DRUG PRIOR TO SAE ON 27/AUG/2014
     Route: 048
     Dates: start: 20140702, end: 20140827
  2. OXALIPLATIN. [Suspect]
     Active Substance: OXALIPLATIN
     Indication: COLORECTAL CANCER METASTATIC
     Dosage: LAST DOSE PRIOR TO SAE ON 13/AUG/2014
     Route: 042
     Dates: start: 20140702, end: 20140813
  3. BEVACIZUMAB [Suspect]
     Active Substance: BEVACIZUMAB
     Indication: COLORECTAL CANCER METASTATIC
     Dosage: LAST DOSE OF DRUG PRIOR TO SAE ON 13/AUG/2014
     Route: 042
     Dates: start: 20140702, end: 20140813

REACTIONS (3)
  - Pulmonary embolism [Fatal]
  - Dehydration [Fatal]
  - Renal failure acute [Fatal]

NARRATIVE: CASE EVENT DATE: 20140828
